FAERS Safety Report 4977968-8 (Version None)
Quarter: 2006Q2

REPORT INFORMATION
  Report Type: 
  Country: None (occurrence: None)
  Receive Date: 20060420
  Receipt Date: 20060410
  Transmission Date: 20061013
  Serious: Yes (Other)
  Sender: FDA-Public Use
  Company Number: 2006AC00705

PATIENT
  Age: 53 Year
  Sex: Male
  Weight: 78 kg

DRUGS (2)
  1. RHINOCORT [Suspect]
     Indication: EAR DISORDER
     Route: 045
     Dates: start: 20020109, end: 20020129
  2. ATENOLOLUM [Concomitant]
     Route: 048

REACTIONS (2)
  - HYPERACUSIS [None]
  - TINNITUS [None]
